FAERS Safety Report 4466176-5 (Version None)
Quarter: 2004Q4

REPORT INFORMATION
  Report Type: 
  Country: None (occurrence: None)
  Receive Date: 20041005
  Receipt Date: 20040924
  Transmission Date: 20050328
  Serious: Yes (Hospitalization)
  Sender: FDA-Public Use
  Company Number: PHEH2004US10334

PATIENT
  Age: 52 Year
  Sex: Male

DRUGS (3)
  1. ZOMETA [Suspect]
     Indication: METASTASES TO BONE
     Dosage: 4 MG, QD
     Route: 042
     Dates: start: 20040921, end: 20040923
  2. LOVENOX [Concomitant]
     Indication: PROPHYLAXIS
  3. ANALGESIC LIQ [Concomitant]

REACTIONS (5)
  - BLOOD MAGNESIUM INCREASED [None]
  - HYPOALBUMINAEMIA [None]
  - HYPOCALCAEMIA [None]
  - HYPOPHOSPHATAEMIA [None]
  - MEDICATION ERROR [None]
